FAERS Safety Report 8361527-3 (Version None)
Quarter: 2012Q2

REPORT INFORMATION
  Report Type: 
  Country: None (occurrence: None)
  Receive Date: 20120515
  Receipt Date: 20120503
  Transmission Date: 20120825
  Serious: Yes (Other)
  Sender: FDA-Public Use
  Company Number: US-ELI_LILLY_AND_COMPANY-US201205002238

PATIENT
  Sex: Female

DRUGS (2)
  1. STRATTERA [Suspect]
     Indication: ATTENTION DEFICIT/HYPERACTIVITY DISORDER
     Dosage: 60 MG, UNK
  2. STRATTERA [Suspect]
     Dosage: 18 MG, UNK
     Dates: start: 20120401

REACTIONS (3)
  - LOSS OF CONSCIOUSNESS [None]
  - HYPOTENSION [None]
  - HYPOAESTHESIA [None]
